FAERS Safety Report 7787268-9 (Version None)
Quarter: 2011Q3

REPORT INFORMATION
  Report Type: 
  Country: None (occurrence: None)
  Receive Date: 20110929
  Receipt Date: 20110919
  Transmission Date: 20111222
  Serious: Yes (Hospitalization)
  Sender: FDA-Public Use
  Company Number: US-JNJFOC-20110901903

PATIENT
  Age: 87 Year
  Sex: Female
  Weight: 77.02 kg

DRUGS (5)
  1. SUNITINIB MALATE [Concomitant]
     Indication: METASTATIC RENAL CELL CARCINOMA
     Route: 048
     Dates: start: 20110613
  2. AMBIEN [Concomitant]
     Indication: INSOMNIA
     Route: 048
     Dates: start: 20080101
  3. SUNITINIB MALATE [Concomitant]
     Route: 048
     Dates: start: 20080219, end: 20110518
  4. VICODIN [Concomitant]
     Indication: PAIN
     Route: 065
     Dates: start: 20050414
  5. FLEXERIL [Suspect]
     Indication: BACK PAIN
     Route: 048
     Dates: start: 20110524, end: 20110531

REACTIONS (1)
  - HYPERTENSIVE EMERGENCY [None]
